FAERS Safety Report 5919900-6 (Version None)
Quarter: 2008Q3

REPORT INFORMATION
  Report Type: 
  Country: None (occurrence: None)
  Receive Date: 20080909
  Receipt Date: 20070809
  Transmission Date: 20090109
  Serious: Yes (Hospitalization, Other)
  Sender: FDA-Public Use
  Company Number: 163-20785-07070572

PATIENT
  Age: 19 Year
  Sex: Male
  Weight: 65.3 kg

DRUGS (24)
  1. THALOMID [Suspect]
     Indication: ACUTE LYMPHOCYTIC LEUKAEMIA RECURRENT
     Dosage: 150 MG, QHS, ORAL ; 250 MG, QHS, ORAL ; 300 MG, QHS, ORAL
     Route: 048
     Dates: start: 20070621, end: 20070709
  2. THALOMID [Suspect]
     Indication: ACUTE LYMPHOCYTIC LEUKAEMIA RECURRENT
     Dosage: 150 MG, QHS, ORAL ; 250 MG, QHS, ORAL ; 300 MG, QHS, ORAL
     Route: 048
     Dates: start: 20070709, end: 20070722
  3. THALOMID [Suspect]
     Indication: ACUTE LYMPHOCYTIC LEUKAEMIA RECURRENT
     Dosage: 150 MG, QHS, ORAL ; 250 MG, QHS, ORAL ; 300 MG, QHS, ORAL
     Route: 048
     Dates: start: 20070723
  4. ETOPOSIDE [Suspect]
     Indication: ACUTE LYMPHOCYTIC LEUKAEMIA RECURRENT
     Dosage: 80 MG, QDX21D, ALTERNATING W/CYCLOPHOSPHAMIDE, ORAL
     Route: 048
     Dates: start: 20070621, end: 20070709
  5. FENOFIBRATE [Suspect]
     Indication: ACUTE LYMPHOCYTIC LEUKAEMIA RECURRENT
     Dosage: 145 MG, QDAY, ORAL
     Route: 048
  6. CELEBREX [Suspect]
     Indication: ACUTE LYMPHOCYTIC LEUKAEMIA RECURRENT
     Dosage: 1 CAPS, Q 12 HOURS, ORAL
     Route: 048
     Dates: start: 20070621
  7. CYTOXAN [Suspect]
     Indication: ACUTE LYMPHOCYTIC LEUKAEMIA RECURRENT
     Dosage: 2 TAB, DAILY, ALTERNATING WITH ETOPOSIDE, ORAL
     Route: 048
  8. LISINOPRIL [Suspect]
     Indication: HYPERTENSION
     Dosage: 10 MG, QDAY
  9. LORAZEPAM (LORAZEPAM) (1 MILLIGRAM, TABLETS) [Concomitant]
  10. LEXAPRO [Concomitant]
  11. HUMALOG [Concomitant]
  12. LANTUS (INSULIN GLARGINE) (SOLUTION) [Concomitant]
  13. OMEPRAZOLE (OMEPRAZOLE) (20 MILLIGRAM, CAPSULES) [Concomitant]
  14. ONDANSETRON HCL (ONDANSETRON HYDROCHLORIDE) (8 MILLIGRAM, TABLETS) [Concomitant]
  15. PENTAMIDINE ISETHIONATE [Concomitant]
  16. VFEND (VORICONAZOLE) (200 MILLIGRAM, TABLETS) [Concomitant]
  17. VANCOMYCIN [Concomitant]
  18. CEFTAZIDIME [Concomitant]
  19. HYDROCORTISONE [Concomitant]
  20. LASIX [Concomitant]
  21. ZYRTEC [Concomitant]
  22. ACETAMINOPHEN [Concomitant]
  23. BENADRYL [Concomitant]
  24. GENTAMICIN [Concomitant]

REACTIONS (13)
  - BRADYCARDIA [None]
  - FATIGUE [None]
  - HAEMOGLOBIN DECREASED [None]
  - HYPOTENSION [None]
  - MYALGIA [None]
  - NEUTROPHIL COUNT ABNORMAL [None]
  - PLATELET COUNT ABNORMAL [None]
  - PYREXIA [None]
  - SEPSIS [None]
  - STOMATITIS [None]
  - STREPTOCOCCAL BACTERAEMIA [None]
  - SYNCOPE [None]
  - TACHYCARDIA [None]
